FAERS Safety Report 15580948 (Version 1)
Quarter: 2018Q4

REPORT INFORMATION
  Report Type: Spontaneous
  Country: FR (occurrence: FR)
  Receive Date: 20181102
  Receipt Date: 20181102
  Transmission Date: 20190205
  Serious: Yes (Hospitalization)
  Sender: FDA-Public Use
  Company Number: PHHY2018FR142552

PATIENT
  Age: 38 Year
  Sex: Female

DRUGS (9)
  1. MOVICOL [Concomitant]
     Active Substance: POLYETHYLENE GLYCOL 3350\POTASSIUM CHLORIDE\SODIUM BICARBONATE\SODIUM CHLORIDE
     Indication: PRODUCT USED FOR UNKNOWN INDICATION
     Dosage: UNK
     Route: 065
  2. SERESTA [Concomitant]
     Active Substance: OXAZEPAM
     Indication: HYPERSOMNIA
     Dosage: UNK
     Route: 065
  3. RISPERDAL [Suspect]
     Active Substance: RISPERIDONE
     Indication: HALLUCINATION, VISUAL
     Dosage: 4 ML, QD
     Route: 048
     Dates: start: 20160606, end: 20160616
  4. RISPERDAL [Suspect]
     Active Substance: RISPERIDONE
     Dosage: 2 ML, QD
     Route: 048
     Dates: start: 20160616, end: 20160622
  5. LOXAPAC [Suspect]
     Active Substance: LOXAPINE
     Indication: AGGRESSION
     Dosage: 50-50-50-100 GTT
     Route: 048
  6. LOXAPAC [Suspect]
     Active Substance: LOXAPINE
     Indication: AGITATION
  7. LOVENOX [Concomitant]
     Active Substance: ENOXAPARIN SODIUM
     Indication: PRODUCT USED FOR UNKNOWN INDICATION
     Dosage: UNK
     Route: 065
  8. BACLOFENE [Suspect]
     Active Substance: BACLOFEN
     Indication: ALCOHOLISM
     Dosage: UNK
     Route: 048
  9. BACLOFENE [Suspect]
     Active Substance: BACLOFEN
     Dosage: 120 MG, QD
     Route: 048

REACTIONS (12)
  - Glomerular filtration rate decreased [Recovered/Resolved]
  - Agitation [Recovered/Resolved]
  - Tachycardia [Unknown]
  - Hypomagnesaemia [Unknown]
  - Delirium tremens [Unknown]
  - Psychomotor retardation [Unknown]
  - Cerebral atrophy [Unknown]
  - Logorrhoea [Unknown]
  - Disorientation [Unknown]
  - Confusional state [Recovering/Resolving]
  - Hypokalaemia [Unknown]
  - Hallucination, visual [Recovered/Resolved]

NARRATIVE: CASE EVENT DATE: 201606
